FAERS Safety Report 5324247-5 (Version None)
Quarter: 2007Q2

REPORT INFORMATION
  Report Type: 
  Country: None (occurrence: None)
  Receive Date: 20070508
  Receipt Date: 20070427
  Transmission Date: 20071010
  Serious: Yes (Other)
  Sender: FDA-Public Use
  Company Number: 07US000884

PATIENT
  Age: 55 Year
  Sex: Female
  Weight: 64.4 kg

DRUGS (6)
  1. PEXEVA [Suspect]
     Indication: DEPRESSION
     Dosage: 20 MG, ORAL
     Route: 048
     Dates: start: 20070418, end: 20070425
  2. WELLBUTRIN SR [Concomitant]
  3. LORAZEPAM [Concomitant]
  4. RANITIDINE [Concomitant]
  5. DIFLUCAN [Concomitant]
  6. ACETAMINOPHEN [Concomitant]

REACTIONS (8)
  - ANAEMIA [None]
  - CONCUSSION [None]
  - CONSTIPATION [None]
  - HEAD INJURY [None]
  - HEADACHE [None]
  - MYCETOMA MYCOTIC [None]
  - SKIN LACERATION [None]
  - SYNCOPE [None]
